FAERS Safety Report 21247466 (Version 1)
Quarter: 2022Q3

REPORT INFORMATION
  Report Type: Report from Study
  Country: CN (occurrence: CN)
  Receive Date: 20220824
  Receipt Date: 20220824
  Transmission Date: 20221026
  Serious: Yes (Life-Threatening, Hospitalization, Other)
  Sender: FDA-Public Use
  Company Number: CN-PFIZER INC-PV202200046845

PATIENT
  Age: 63 Day
  Sex: Female

DRUGS (6)
  1. SIROLIMUS [Suspect]
     Active Substance: SIROLIMUS
     Indication: Haemangioma-thrombocytopenia syndrome
     Dosage: 0.05 MG/KG, 2X/DAY
  2. PREDNISOLONE [Suspect]
     Active Substance: PREDNISOLONE
     Indication: Haemangioma-thrombocytopenia syndrome
     Dosage: 2 MG/KG/DAY
  3. PREDNISOLONE [Suspect]
     Active Substance: PREDNISOLONE
     Dosage: UNK (TAPERED)
  4. VINCRISTINE [Suspect]
     Active Substance: VINCRISTINE
     Indication: Haemangioma-thrombocytopenia syndrome
     Dosage: 0.05 MG/KG, WEEKLY
  5. COTRIMOXAZOLE [Concomitant]
     Active Substance: SULFAMETHOXAZOLE\TRIMETHOPRIM
     Indication: Pneumocystis jirovecii pneumonia
     Dosage: UNK
  6. METRONIDAZOLE [Concomitant]
     Active Substance: METRONIDAZOLE
     Indication: Pneumocystis jirovecii pneumonia
     Dosage: UNK

REACTIONS (1)
  - Pneumonia [Recovered/Resolved]
